FAERS Safety Report 5143767-X (Version None)
Quarter: 2006Q4

REPORT INFORMATION
  Report Type: 
  Country: None (occurrence: None)
  Receive Date: 20061106
  Receipt Date: 20061026
  Transmission Date: 20070319
  Serious: Yes (Hospitalization)
  Sender: FDA-Public Use
  Company Number: JP-JNJFOC-20060905005

PATIENT
  Sex: Female

DRUGS (7)
  1. ITRIZOLE [Suspect]
     Indication: ORAL CANDIDIASIS
     Route: 048
     Dates: start: 20060808, end: 20060811
  2. TAMBOCOR [Interacting]
     Indication: ATRIAL TACHYCARDIA
     Route: 048
  3. MAINTATE [Concomitant]
     Indication: ATRIAL TACHYCARDIA
     Route: 048
  4. BLOPRESS [Concomitant]
     Indication: HYPERTENSION
     Route: 048
  5. MEVALOTIN [Concomitant]
     Indication: HYPERLIPIDAEMIA
     Route: 048
  6. PURSENNID [Concomitant]
     Indication: CONSTIPATION
     Route: 048
  7. MAGNESIUM OXIDE [Concomitant]
     Indication: CONSTIPATION
     Route: 048

REACTIONS (4)
  - DRUG INTERACTION [None]
  - LONG QT SYNDROME [None]
  - SICK SINUS SYNDROME [None]
  - TORSADE DE POINTES [None]
